FAERS Safety Report 4778387-X (Version None)
Quarter: 2005Q3

REPORT INFORMATION
  Report Type: 
  Country: None (occurrence: None)
  Receive Date: 20050926
  Receipt Date: 20050902
  Transmission Date: 20060218
  Serious: Yes (Other)
  Sender: FDA-Public Use
  Company Number: JP-GLAXOSMITHKLINE-B0392745A

PATIENT
  Age: 35 Year
  Sex: Female
  Weight: 37 kg

DRUGS (21)
  1. MELPHALAN [Suspect]
     Indication: STEM CELL TRANSPLANT
     Dosage: 75MG PER DAY
     Route: 042
     Dates: start: 20030325, end: 20030326
  2. BUSULFAN [Suspect]
     Indication: STEM CELL TRANSPLANT
     Dosage: 144MG PER DAY
     Route: 048
     Dates: start: 20030321, end: 20030324
  3. CYCLOSPORINE [Suspect]
     Indication: IMMUNOSUPPRESSION
     Dosage: 230MG PER DAY
     Dates: start: 20030327
  4. VANCOMYCIN [Suspect]
     Route: 042
     Dates: start: 20030320, end: 20030502
  5. GRAN [Concomitant]
  6. KYTRIL [Concomitant]
  7. MEROPEN [Concomitant]
  8. ADONA [Concomitant]
  9. ISCOTIN [Concomitant]
  10. ZOVIRAX [Concomitant]
  11. NYSTATIN [Concomitant]
  12. URSODIOL [Concomitant]
  13. SELBEX [Concomitant]
  14. POLYMYXIN [Concomitant]
  15. ALLOPURINOL [Concomitant]
  16. GASTER [Concomitant]
  17. ALDACTONE [Concomitant]
  18. AZACTAM [Concomitant]
  19. DIFLUCAN [Concomitant]
  20. CIPROXAN [Concomitant]
  21. HEPARIN [Concomitant]

REACTIONS (1)
  - CARDIAC FAILURE [None]
